FAERS Safety Report 7672599-3 (Version None)
Quarter: 2011Q3

REPORT INFORMATION
  Report Type: 
  Country: None (occurrence: None)
  Receive Date: 20110804
  Receipt Date: 20110720
  Transmission Date: 20111222
  Serious: Yes (Hospitalization)
  Sender: FDA-Public Use
  Company Number: USA/USA/11/0019187

PATIENT
  Age: 84 Year
  Sex: Male

DRUGS (5)
  1. SIMVASTATIN [Suspect]
     Dosage: 40 MG, 1 D,
  2. ASPIRIN [Concomitant]
  3. WARFARIN SODIUM [Concomitant]
  4. HYDROCHLORATHIAZIDE (HYDROCHLOROTHIAZIDE) [Concomitant]
  5. VALSARTAN [Concomitant]

REACTIONS (14)
  - BLOOD PRESSURE SYSTOLIC INCREASED [None]
  - ASTHENIA [None]
  - RHABDOMYOLYSIS [None]
  - AMNESIA [None]
  - ASPARTATE AMINOTRANSFERASE INCREASED [None]
  - ARTHROPOD BITE [None]
  - MENINGITIS [None]
  - RENAL FAILURE ACUTE [None]
  - HUMAN ANAPLASMOSIS [None]
  - DIARRHOEA [None]
  - PANCYTOPENIA [None]
  - WHEEZING [None]
  - URINARY INCONTINENCE [None]
  - RASH ERYTHEMATOUS [None]
